FAERS Safety Report 4452057-X (Version None)
Quarter: 2004Q3

REPORT INFORMATION
  Report Type: 
  Country: None (occurrence: None)
  Receive Date: 20040913
  Receipt Date: 20040719
  Transmission Date: 20050211
  Serious: No
  Sender: FDA-Public Use
  Company Number: 2004-BP-05950BP(0)

PATIENT
  Age: 75 Year
  Sex: Female

DRUGS (9)
  1. SPIRIVA [Suspect]
     Indication: CHRONIC OBSTRUCTIVE AIRWAYS DISEASE
     Dosage: 18 MCG (18 MCG), IH
     Dates: start: 20040714, end: 20040716
  2. ALBUTEROL [Concomitant]
  3. ATROVENT [Concomitant]
  4. ADVAIR (SERETIDE MITE) [Concomitant]
  5. ALTACE [Concomitant]
  6. PREDNISONE [Concomitant]
  7. SINGULAIR [Concomitant]
  8. COUMADIN [Concomitant]
  9. LANOXIN [Concomitant]

REACTIONS (1)
  - DYSPNOEA [None]
